FAERS Safety Report 14803251 (Version 2)
Quarter: 2018Q2

REPORT INFORMATION
  Report Type: Report from Study
  Country: US (occurrence: US)
  Receive Date: 20180425
  Receipt Date: 20180515
  Transmission Date: 20180711
  Serious: Yes (Other)
  Sender: FDA-Public Use
  Company Number: US-ROCHE-2110097

PATIENT
  Age: 66 Year
  Sex: Male

DRUGS (1)
  1. OCREVUS [Suspect]
     Active Substance: OCRELIZUMAB
     Indication: MULTIPLE SCLEROSIS
     Route: 065

REACTIONS (14)
  - Ear infection [Unknown]
  - Somnolence [Unknown]
  - Influenza [Unknown]
  - Fatigue [Unknown]
  - Dry mouth [Unknown]
  - Dry skin [Unknown]
  - Dysphagia [Unknown]
  - Facial pain [Unknown]
  - Musculoskeletal stiffness [Unknown]
  - Mastication disorder [Unknown]
  - Feeding disorder [Unknown]
  - Oropharyngeal pain [Unknown]
  - Rhinorrhoea [Unknown]
  - Ear pain [Unknown]

NARRATIVE: CASE EVENT DATE: 201804
